FAERS Safety Report 8961962 (Version 3)
Quarter: 2013Q1

REPORT INFORMATION
  Report Type: Spontaneous
  Country: JP (occurrence: JP)
  Receive Date: 20121213
  Receipt Date: 20130124
  Transmission Date: 20140127
  Serious: Yes (Death, Other)
  Sender: FDA-Public Use
  Company Number: JP-PFIZER INC-2012311551

PATIENT
  Age: 71 Year
  Sex: Female

DRUGS (5)
  1. HEPARIN SODIUM [Suspect]
     Indication: THROMBOSIS PROPHYLAXIS
     Dosage: 9000 IU, DAILY
     Route: 042
  2. NOVASTAN [Concomitant]
     Indication: THROMBOSIS PROPHYLAXIS
     Dosage: UNK
     Route: 065
  3. PAZUCROSS [Concomitant]
     Dosage: UNK
     Route: 051
  4. FUROSEMIDE [Concomitant]
     Dosage: UNK
     Route: 065
  5. MILRINONE [Concomitant]
     Dosage: UNK
     Route: 065

REACTIONS (5)
  - Thrombosis [Fatal]
  - Heparin-induced thrombocytopenia [Fatal]
  - Pneumonia [Fatal]
  - Agranulocytosis [Fatal]
  - Sepsis [Fatal]
